FAERS Safety Report 23741514 (Version 3)
Quarter: 2024Q2

REPORT INFORMATION
  Report Type: Report from Study
  Country: FI (occurrence: FI)
  Receive Date: 20240415
  Receipt Date: 20240502
  Transmission Date: 20240715
  Serious: Yes (Other)
  Sender: FDA-Public Use
  Company Number: FI-MYLANLABS-2024M1027483

PATIENT
  Age: 31 Year
  Sex: Male

DRUGS (6)
  1. CLOZAPINE [Suspect]
     Active Substance: CLOZAPINE
     Indication: Schizophrenia
     Dosage: WHEN SYMPTOM STARTED, DOSE 300 MG/DAY TAKEN IN THE EVENING. DOSE INCREASED TO THIS LEVEL DURING
     Route: 048
     Dates: start: 20240223, end: 20240315
  2. CLOZAPINE [Suspect]
     Active Substance: CLOZAPINE
     Dosage: 150 MILLIGRAM (DOSE REDUCED BY HALVE)
     Route: 048
     Dates: start: 202403, end: 20240314
  3. METFORMIN [Concomitant]
     Active Substance: METFORMIN HYDROCHLORIDE
     Indication: Type 2 diabetes mellitus
     Dosage: UNK
     Route: 048
     Dates: start: 2022
  4. TRULICITY [Concomitant]
     Active Substance: DULAGLUTIDE
     Indication: Type 2 diabetes mellitus
     Dosage: 1 DOSE EVERY 7TH DAY, IRREGULAR USE BEFORE THE WARD PERIOD
     Route: 058
     Dates: start: 2024
  5. PALIPERIDONE PALMITATE [Concomitant]
     Active Substance: PALIPERIDONE PALMITATE
     Indication: Schizophrenia
     Dosage: 3RD DOSE 150 MG MEANT TO BE ADMINISTERED 06-MARCH, BUT INSTEAD OF IT MEDICATION CHANGED TO LEPONEX
     Route: 042
     Dates: start: 20240131, end: 20240131
  6. PALIPERIDONE PALMITATE [Concomitant]
     Active Substance: PALIPERIDONE PALMITATE
     Dosage: THIRD DOSE WAS SUPPOSED TO BE GIVEN ON 6.3. 150 MG, BUT SWITCHED TO LEPONEX INSTEAD
     Route: 042
     Dates: start: 20240207, end: 20240207

REACTIONS (15)
  - Dyspnoea [Recovered/Resolved]
  - C-reactive protein increased [Recovered/Resolved]
  - Antipsychotic drug level increased [Recovered/Resolved]
  - Dizziness postural [Recovering/Resolving]
  - N-terminal prohormone brain natriuretic peptide increased [Recovering/Resolving]
  - Troponin T increased [Recovered/Resolved]
  - Red blood cell sedimentation rate increased [Recovering/Resolving]
  - Vision blurred [Recovering/Resolving]
  - Chest pain [Recovering/Resolving]
  - Heart rate increased [Recovering/Resolving]
  - Myocarditis [Recovered/Resolved]
  - Palpitations [Recovered/Resolved]
  - Eosinophilia [Recovered/Resolved]
  - Sinus tachycardia [Recovered/Resolved]
  - Hypertension [Recovered/Resolved]

NARRATIVE: CASE EVENT DATE: 20240301
